FAERS Safety Report 22128501 (Version 2)
Quarter: 2023Q1

REPORT INFORMATION
  Report Type: Other
  Country: PK (occurrence: None)
  Receive Date: 20230323
  Receipt Date: 20230331
  Transmission Date: 20230417
  Serious: Yes (Death)
  Sender: FDA-Public Use
  Company Number: PK-ROCHE-3315194

PATIENT
  Age: 45 Year
  Sex: Female

DRUGS (2)
  1. HERCEPTIN [Suspect]
     Active Substance: TRASTUZUMAB
     Indication: Breast cancer
     Route: 058
     Dates: start: 20221130
  2. PERJETA [Suspect]
     Active Substance: PERTUZUMAB
     Indication: Breast cancer
     Route: 041
     Dates: start: 20221130

REACTIONS (1)
  - Metastasis [Fatal]

NARRATIVE: CASE EVENT DATE: 20221222
